FAERS Safety Report 8762642 (Version 1)
Quarter: 2012Q4

REPORT INFORMATION
  Report Type: 
  Country: US (occurrence: US)
  Receive Date: 20120830
  Receipt Date: 20120830
  Transmission Date: 20130627
  Serious: No
  Sender: FDA-Public Use
  Company Number: US-PFIZER INC-2012210513

PATIENT
  Sex: Female

DRUGS (2)
  1. ADVIL [Suspect]
     Indication: PAIN
     Dosage: 200 mg, 1x/day
     Route: 048
     Dates: end: 201109
  2. ADVIL [Suspect]
     Indication: SCOLIOSIS
     Dosage: 2 tablets of 200 mg at once
     Route: 048
     Dates: start: 201109, end: 201204

REACTIONS (1)
  - Drug ineffective [Unknown]
